FAERS Safety Report 16218586 (Version 1)
Quarter: 2019Q2

REPORT INFORMATION
  Report Type: Spontaneous
  Country: GB (occurrence: GB)
  Receive Date: 20190419
  Receipt Date: 20190419
  Transmission Date: 20190711
  Serious: Yes (Hospitalization)
  Sender: FDA-Public Use
  Company Number: GB-TEVA-2019-GB-1038874

PATIENT
  Age: 72 Year
  Sex: Female

DRUGS (2)
  1. FLUCLOXACILLIN SODIUM [Suspect]
     Active Substance: FLUCLOXACILLIN SODIUM
     Indication: BLISTER
     Dosage: 2000 MILLIGRAM DAILY;
     Route: 048
     Dates: start: 20190219, end: 20190311
  2. MEMANTINE HYDROCHLORIDE. [Suspect]
     Active Substance: MEMANTINE HYDROCHLORIDE
     Indication: MEMORY IMPAIRMENT
     Dosage: 5MG OD FOR 3 DAYS THEN 10MG OD FOR 10 DAYS THEN 15MG OD UNTIL STOPPED
     Route: 048
     Dates: start: 20190228, end: 20190317

REACTIONS (2)
  - Jaundice [Unknown]
  - Liver function test abnormal [Unknown]
